FAERS Safety Report 5373540-9 (Version None)
Quarter: 2007Q2

REPORT INFORMATION
  Report Type: 
  Country: None (occurrence: None)
  Receive Date: 20070628
  Receipt Date: 20070622
  Transmission Date: 20071010
  Serious: Yes (Hospitalization)
  Sender: FDA-Public Use
  Company Number: B0475301A

PATIENT
  Age: 69 Year
  Sex: Male

DRUGS (5)
  1. REQUIP [Suspect]
     Indication: GAIT DISTURBANCE
     Dosage: 2MG THREE TIMES PER DAY
     Route: 048
     Dates: start: 20070307, end: 20070425
  2. MADOPAR [Concomitant]
     Route: 048
  3. DIOVAN [Concomitant]
     Route: 048
  4. RESLIN [Concomitant]
     Route: 048
  5. ALMARL [Concomitant]
     Route: 048

REACTIONS (2)
  - HALLUCINATION [None]
  - PORIOMANIA [None]
